FAERS Safety Report 15766780 (Version 2)
Quarter: 2018Q4

REPORT INFORMATION
  Report Type: Spontaneous
  Country: GE (occurrence: GE)
  Receive Date: 20181227
  Receipt Date: 20181228
  Transmission Date: 20190205
  Serious: Yes (Death)
  Sender: FDA-Public Use
  Company Number: PHHY2018GE196288

PATIENT
  Sex: Male

DRUGS (1)
  1. GLIVEC [Suspect]
     Active Substance: IMATINIB MESYLATE
     Indication: GASTROINTESTINAL STROMAL TUMOUR
     Dosage: 800 MG, (8 X100 MG)
     Route: 065
     Dates: end: 201807

REACTIONS (3)
  - Second primary malignancy [Fatal]
  - Nasopharyngeal cancer [Fatal]
  - Malignant neoplasm progression [Fatal]
